FAERS Safety Report 24370933 (Version 1)
Quarter: 2024Q3

REPORT INFORMATION
  Report Type: Spontaneous
  Country: US (occurrence: US)
  Receive Date: 20240927
  Receipt Date: 20240927
  Transmission Date: 20241016
  Serious: Yes (Hospitalization, Other)
  Sender: BIOGEN
  Company Number: US-BBU-2024000287

PATIENT
  Age: 69 Year
  Sex: Male

DRUGS (3)
  1. TOCILIZUMAB [Suspect]
     Active Substance: TOCILIZUMAB
     Indication: COVID-19 pneumonia
     Dosage: ONE DOSE
  2. REMDESIVIR [Concomitant]
     Active Substance: REMDESIVIR
     Indication: COVID-19 pneumonia
     Dosage: 5 DAYS
  3. DEXAMETHASONE [Concomitant]
     Active Substance: DEXAMETHASONE
     Indication: COVID-19 pneumonia
     Dosage: 10 DAYS

REACTIONS (4)
  - Pneumonia streptococcal [Recovering/Resolving]
  - Infectious pleural effusion [Recovering/Resolving]
  - Escherichia infection [Recovering/Resolving]
  - Bacterial infection [Recovering/Resolving]
